FAERS Safety Report 8219314-2 (Version None)
Quarter: 2012Q1

REPORT INFORMATION
  Report Type: 
  Country: None (occurrence: None)
  Receive Date: 20120319
  Receipt Date: 20120313
  Transmission Date: 20120608
  Serious: Yes (Death)
  Sender: FDA-Public Use
  Company Number: JP-ASTELLAS-2012JP002281

PATIENT
  Age: 44 Year
  Sex: Female

DRUGS (3)
  1. PROGRAF [Suspect]
     Dosage: UNK
     Route: 041
     Dates: start: 20120125, end: 20120309
  2. SIMULECT [Concomitant]
     Route: 042
  3. MYCOPHENOLATE MOFETIL (CELLCEPT) [Concomitant]
     Route: 048

REACTIONS (1)
  - DEATH [None]
